FAERS Safety Report 10496207 (Version 1)
Quarter: 2014Q4

REPORT INFORMATION
  Report Type: Spontaneous
  Country: US (occurrence: US)
  Receive Date: 20141003
  Receipt Date: 20141003
  Transmission Date: 20150528
  Serious: No
  Sender: FDA-Public Use
  Company Number: US-ENDO PHARMACEUTICALS INC.-SPIR20130008

PATIENT
  Age: 30 Year
  Sex: Female
  Weight: 51.3 kg

DRUGS (2)
  1. SPIRONOLACTONE TABLETS 50MG [Suspect]
     Active Substance: SPIRONOLACTONE
     Indication: ACNE
     Dosage: 50MG
     Route: 048
     Dates: end: 2013
  2. SPIRONOLACTONE TABLETS 50MG [Suspect]
     Active Substance: SPIRONOLACTONE
     Dosage: 50 MG
     Route: 048
     Dates: start: 20131119

REACTIONS (4)
  - Drug ineffective [Unknown]
  - Mixed connective tissue disease [Not Recovered/Not Resolved]
  - Coeliac disease [Not Recovered/Not Resolved]
  - Acne [Unknown]

NARRATIVE: CASE EVENT DATE: 201309
